FAERS Safety Report 7905603 (Version 6)
Quarter: 2018Q4

REPORT INFORMATION
  Report Type: Spontaneous
  Country: GB (occurrence: GB)
  Receive Date: 20110419
  Receipt Date: 20181219
  Transmission Date: 20190205
  Serious: Yes (Other)
  Sender: FDA-Public Use
  Company Number: GB-MYLANLABS-2011S1007297

PATIENT
  Age: 24 Year
  Sex: Male
  Weight: 88.9 kg

DRUGS (4)
  1. LORAZEPAM. [Concomitant]
     Active Substance: LORAZEPAM
     Indication: ANXIETY
     Dosage: 3 MG,QD
     Route: 048
     Dates: start: 20070622, end: 20070622
  2. LORAZEPAM. [Concomitant]
     Active Substance: LORAZEPAM
     Indication: PRESYNCOPE
     Dosage: 1.5 MG, QD
     Route: 048
     Dates: start: 20100430
  3. CITALOPRAM [Suspect]
     Active Substance: CITALOPRAM HYDROBROMIDE
     Dosage: 40 MG,QD
     Dates: end: 2008
  4. CITALOPRAM [Suspect]
     Active Substance: CITALOPRAM HYDROBROMIDE
     Indication: OBSESSIVE-COMPULSIVE DISORDER
     Dosage: INITIALLY 20MG
     Dates: start: 2007

REACTIONS (9)
  - Orgasmic sensation decreased [Not Recovered/Not Resolved]
  - Depression [Not Recovered/Not Resolved]
  - Suicidal ideation [Unknown]
  - Self-injurious ideation [Unknown]
  - Headache [Not Recovered/Not Resolved]
  - Premature ejaculation [Not Recovered/Not Resolved]
  - Libido decreased [Not Recovered/Not Resolved]
  - Depressed mood [Not Recovered/Not Resolved]
  - Sexual dysfunction [Not Recovered/Not Resolved]

NARRATIVE: CASE EVENT DATE: 200711
